FAERS Safety Report 7210580-9 (Version None)
Quarter: 2011Q1

REPORT INFORMATION
  Report Type: 
  Country: None (occurrence: None)
  Receive Date: 20110105
  Receipt Date: 20101227
  Transmission Date: 20110831
  Serious: Yes (Hospitalization, Other)
  Sender: FDA-Public Use
  Company Number: PHHY2010JP22926

PATIENT
  Sex: Male
  Weight: 85 kg

DRUGS (5)
  1. EPEL [Suspect]
     Indication: BACK PAIN
     Dosage: 150 MG
     Route: 048
     Dates: start: 20100311
  2. VOLTAREN [Suspect]
     Indication: BACK PAIN
     Dosage: 25 MG, PRN
     Route: 048
     Dates: start: 20100311, end: 20100301
  3. VOLTAREN [Suspect]
     Indication: INTERVERTEBRAL DISC PROTRUSION
     Dosage: 50 MG
     Route: 048
     Dates: start: 20100311, end: 20100312
  4. NEUROTROPIN [Suspect]
     Indication: BACK PAIN
     Dosage: 4 DF, (16 IU)
     Route: 048
     Dates: start: 20100311, end: 20100312
  5. MUCOSTA [Suspect]
     Indication: GASTRITIS PROPHYLAXIS
     Dosage: 300 MG, UNK
     Route: 048
     Dates: start: 20100311, end: 20100312

REACTIONS (6)
  - DRUG RASH WITH EOSINOPHILIA AND SYSTEMIC SYMPTOMS [None]
  - BLOOD PRESSURE DECREASED [None]
  - PRURITUS GENERALISED [None]
  - DYSPNOEA [None]
  - DRUG HYPERSENSITIVITY [None]
  - GENERALISED ERYTHEMA [None]
